FAERS Safety Report 25430699 (Version 1)
Quarter: 2025Q2

REPORT INFORMATION
  Report Type: Spontaneous
  Country: GB (occurrence: GB)
  Receive Date: 20250612
  Receipt Date: 20250612
  Transmission Date: 20250716
  Serious: Yes (Other)
  Sender: BOEHRINGER INGELHEIM
  Company Number: GB-BoehringerIngelheim-2025-BI-076526

PATIENT
  Age: 7 Decade
  Sex: Female

DRUGS (1)
  1. PRAMIPEXOLE [Suspect]
     Active Substance: PRAMIPEXOLE
     Indication: Parkinson^s disease

REACTIONS (1)
  - Hallucination, visual [Recovered/Resolved]

NARRATIVE: CASE EVENT DATE: 20220101
